FAERS Safety Report 16292328 (Version 2)
Quarter: 2020Q2

REPORT INFORMATION
  Report Type: Spontaneous
  Country: US (occurrence: US)
  Receive Date: 20190509
  Receipt Date: 20200417
  Transmission Date: 20200713
  Serious: Yes (Other)
  Sender: FDA-Public Use
  Company Number: US-ASTRAZENECA-2019SE63065

PATIENT
  Age: 648 Month
  Sex: Female
  Weight: 66.7 kg

DRUGS (47)
  1. DIGOXIN. [Concomitant]
     Active Substance: DIGOXIN
  2. ALTACE [Concomitant]
     Active Substance: RAMIPRIL
  3. METRONIDAZOLE. [Concomitant]
     Active Substance: METRONIDAZOLE
  4. FLECAINIDE [Concomitant]
     Active Substance: FLECAINIDE
  5. VYTORIN [Concomitant]
     Active Substance: EZETIMIBE\SIMVASTATIN
  6. PROTONIX [Suspect]
     Active Substance: PANTOPRAZOLE SODIUM
     Indication: GASTROOESOPHAGEAL REFLUX DISEASE
     Route: 065
     Dates: start: 20050429, end: 20070504
  7. PROMETHAZINE [Concomitant]
     Active Substance: PROMETHAZINE HYDROCHLORIDE
  8. CYTOXAN [Concomitant]
     Active Substance: CYCLOPHOSPHAMIDE
  9. LEVOTHYROXINE. [Concomitant]
     Active Substance: LEVOTHYROXINE
  10. FUROSEMIDE. [Concomitant]
     Active Substance: FUROSEMIDE
  11. CYCLOBENZAPRINE. [Concomitant]
     Active Substance: CYCLOBENZAPRINE
     Indication: MUSCLE SPASMS
  12. FLUCONAZOLE. [Concomitant]
     Active Substance: FLUCONAZOLE
  13. KETOROLAC [Concomitant]
     Active Substance: KETOROLAC TROMETHAMINE
  14. METANX [Concomitant]
     Active Substance: LEVOMEFOLATE CALCIUM\METHYLCOBALAMIN\PYRIDOXAL PHOSPHATE ANHYDROUS
  15. NEXIUM [Suspect]
     Active Substance: ESOMEPRAZOLE MAGNESIUM
     Indication: GASTROOESOPHAGEAL REFLUX DISEASE
     Route: 048
     Dates: start: 198909, end: 201812
  16. NEXIUM [Suspect]
     Active Substance: ESOMEPRAZOLE MAGNESIUM
     Indication: GASTROOESOPHAGEAL REFLUX DISEASE
     Route: 048
     Dates: start: 20080916, end: 20090414
  17. PROTONIX [Suspect]
     Active Substance: PANTOPRAZOLE SODIUM
     Indication: GASTROOESOPHAGEAL REFLUX DISEASE
     Route: 065
     Dates: start: 198909, end: 201812
  18. DIAZEPAM. [Concomitant]
     Active Substance: DIAZEPAM
  19. ONDANSETRON ODT [Concomitant]
     Active Substance: ONDANSETRON
  20. METHOTREXATE. [Concomitant]
     Active Substance: METHOTREXATE
  21. KLOR-CON [Concomitant]
     Active Substance: POTASSIUM CHLORIDE
  22. PILOCARPINE. [Concomitant]
     Active Substance: PILOCARPINE
  23. GLIMEPIRIDE. [Concomitant]
     Active Substance: GLIMEPIRIDE
  24. PRILOSEC [Suspect]
     Active Substance: OMEPRAZOLE MAGNESIUM
     Indication: GASTROOESOPHAGEAL REFLUX DISEASE
     Route: 048
     Dates: start: 2005, end: 2006
  25. FUROSEMIDE. [Concomitant]
     Active Substance: FUROSEMIDE
     Indication: FLUID RETENTION
  26. PERCOCET [Concomitant]
     Active Substance: ACETAMINOPHEN\OXYCODONE HYDROCHLORIDE
  27. CYCLOBENZAPRINE. [Concomitant]
     Active Substance: CYCLOBENZAPRINE
  28. TIZANIDINE. [Concomitant]
     Active Substance: TIZANIDINE
  29. GABAPENTIN. [Concomitant]
     Active Substance: GABAPENTIN
  30. TRENTAL [Concomitant]
     Active Substance: PENTOXIFYLLINE
  31. SYNTHROID [Concomitant]
     Active Substance: LEVOTHYROXINE SODIUM
  32. PRILOSEC [Suspect]
     Active Substance: OMEPRAZOLE MAGNESIUM
     Indication: GASTROOESOPHAGEAL REFLUX DISEASE
     Route: 048
     Dates: start: 198909, end: 201812
  33. OXYCODONE [Concomitant]
     Active Substance: OXYCODONE
  34. ENOXAPARIN [Concomitant]
     Active Substance: ENOXAPARIN
  35. PLAQUENIL [Concomitant]
     Active Substance: HYDROXYCHLOROQUINE SULFATE
  36. LYRICA [Concomitant]
     Active Substance: PREGABALIN
  37. HYDROCODONE BITARTRATE AND ACETAMINOPHEN [Concomitant]
     Active Substance: ACETAMINOPHEN\HYDROCODONE BITARTRATE
  38. PREVACID [Suspect]
     Active Substance: LANSOPRAZOLE
     Indication: GASTROOESOPHAGEAL REFLUX DISEASE
     Route: 065
     Dates: start: 198909, end: 201812
  39. PREVACID [Suspect]
     Active Substance: LANSOPRAZOLE
     Indication: GASTROOESOPHAGEAL REFLUX DISEASE
     Route: 065
     Dates: start: 2000, end: 2005
  40. QUETIAPINE FUMARATE. [Concomitant]
     Active Substance: QUETIAPINE FUMARATE
  41. CIPROFLOXACIN. [Concomitant]
     Active Substance: CIPROFLOXACIN
  42. PROTONIX [Suspect]
     Active Substance: PANTOPRAZOLE SODIUM
     Indication: GASTROOESOPHAGEAL REFLUX DISEASE
     Dosage: GENERIC
     Route: 065
     Dates: start: 20130325, end: 20180417
  43. TIZANIDINE. [Concomitant]
     Active Substance: TIZANIDINE
     Indication: MUSCLE SPASMS
  44. PREDNISONE. [Concomitant]
     Active Substance: PREDNISONE
  45. AMBIEN [Concomitant]
     Active Substance: ZOLPIDEM TARTRATE
  46. AZITHROMYCIN ANHYDROUS. [Concomitant]
     Active Substance: AZITHROMYCIN ANHYDROUS
  47. CELLCEPT [Concomitant]
     Active Substance: MYCOPHENOLATE MOFETIL\MYCOPHENOLATE MOFETIL HYDROCHLORIDE

REACTIONS (1)
  - Chronic kidney disease [Not Recovered/Not Resolved]

NARRATIVE: CASE EVENT DATE: 200501
